FAERS Safety Report 8921713 (Version 3)
Quarter: 2013Q1

REPORT INFORMATION
  Report Type: Spontaneous
  Country: FR (occurrence: FR)
  Receive Date: 20121121
  Receipt Date: 20130122
  Transmission Date: 20140127
  Serious: Yes (Other)
  Sender: FDA-Public Use
  Company Number: FR-GILEAD-2012-0064915

PATIENT
  Age: 46 Year
  Sex: Male

DRUGS (2)
  1. ATRIPLA [Suspect]
     Indication: HIV INFECTION
     Dosage: UNK
  2. BUPRENORPHINE [Concomitant]

REACTIONS (6)
  - Dysstasia [Unknown]
  - Fatigue [Unknown]
  - Feeling drunk [Unknown]
  - Intentional drug misuse [Unknown]
  - Tinnitus [Unknown]
  - Depression [Unknown]
